FAERS Safety Report 19729590 (Version 1)
Quarter: 2021Q3

REPORT INFORMATION
  Report Type: Spontaneous
  Country: US (occurrence: US)
  Receive Date: 20210820
  Receipt Date: 20210820
  Transmission Date: 20211014
  Serious: No
  Sender: FDA-Public Use
  Company Number: US-ASTRAZENECA-2021A633996

PATIENT
  Age: 64 Year
  Sex: Female
  Weight: 52.2 kg

DRUGS (1)
  1. CRESTOR [Suspect]
     Active Substance: ROSUVASTATIN CALCIUM
     Indication: BLOOD CHOLESTEROL INCREASED
     Route: 048
     Dates: start: 20210404, end: 20210614

REACTIONS (3)
  - Feeling abnormal [Recovered/Resolved]
  - Memory impairment [Recovered/Resolved]
  - Drug dependence [Recovered/Resolved]
